FAERS Safety Report 8840455 (Version 1)
Quarter: 2012Q4

REPORT INFORMATION
  Report Type: 
  Country: US (occurrence: US)
  Receive Date: 20121015
  Receipt Date: 20121015
  Transmission Date: 20130627
  Serious: Yes (Hospitalization, Other)
  Sender: FDA-Public Use
  Company Number: US-ROCHE-1140382

PATIENT
  Sex: Male
  Weight: 53.4 kg

DRUGS (5)
  1. NUTROPIN AQ [Suspect]
     Indication: GROWTH HORMONE DEFICIENCY
     Route: 058
  2. NUTROPIN AQ [Suspect]
     Route: 058
  3. NUTROPIN AQ [Suspect]
     Route: 058
  4. LHRH AGONIST [Concomitant]
  5. RITALIN [Concomitant]

REACTIONS (3)
  - Osteomyelitis [Unknown]
  - Respiratory tract infection [Unknown]
  - Cough [Unknown]
